FAERS Safety Report 7398449-0 (Version None)
Quarter: 2011Q2

REPORT INFORMATION
  Report Type: 
  Country: None (occurrence: None)
  Receive Date: 20110407
  Receipt Date: 20110329
  Transmission Date: 20111010
  Serious: Yes (Hospitalization)
  Sender: FDA-Public Use
  Company Number: US-BIOGENIDEC-2011BI011961

PATIENT
  Age: 64 Year
  Sex: Female

DRUGS (2)
  1. TYSABRI [Suspect]
     Indication: MULTIPLE SCLEROSIS
     Route: 042
     Dates: start: 20090811, end: 20100526
  2. TYSABRI [Suspect]
     Route: 042
     Dates: start: 20110211

REACTIONS (4)
  - ARTHRITIS [None]
  - STRESS [None]
  - UPPER LIMB FRACTURE [None]
  - FALL [None]
